FAERS Safety Report 21863984 (Version 1)
Quarter: 2023Q1

REPORT INFORMATION
  Report Type: Spontaneous
  Country: GB (occurrence: GB)
  Receive Date: 20230116
  Receipt Date: 20230116
  Transmission Date: 20230418
  Serious: Yes (Other)
  Sender: FDA-Public Use
  Company Number: GB-MHRA-MED-202301031127574390-DHVRM

PATIENT
  Sex: Female

DRUGS (1)
  1. ISOSORBIDE MONONITRATE [Suspect]
     Active Substance: ISOSORBIDE MONONITRATE
     Indication: Product used for unknown indication
     Dosage: 140 MILLIGRAM, DAILY (INCORRECT DOSE PATIENT TOOK)
     Route: 065

REACTIONS (3)
  - Epistaxis [Recovered/Resolved]
  - Illness [Recovered/Resolved]
  - Medication error [Unknown]
